FAERS Safety Report 24713787 (Version 1)
Quarter: 2024Q4

REPORT INFORMATION
  Report Type: Spontaneous
  Country: HR (occurrence: HR)
  Receive Date: 20241209
  Receipt Date: 20241209
  Transmission Date: 20250115
  Serious: Yes (Other)
  Sender: INCYTE
  Company Number: HR-002147023-NVSC2024HR232388

PATIENT

DRUGS (4)
  1. RUXOLITINIB [Suspect]
     Active Substance: RUXOLITINIB
     Indication: Myelofibrosis
     Dosage: 10 MG (2X1)
     Route: 065
     Dates: start: 20151229, end: 201601
  2. RUXOLITINIB [Suspect]
     Active Substance: RUXOLITINIB
     Dosage: 15 MG (2X1)
     Route: 065
     Dates: start: 201601, end: 201701
  3. RUXOLITINIB [Suspect]
     Active Substance: RUXOLITINIB
     Dosage: 20 MG (2X1)
     Route: 065
     Dates: start: 201701, end: 202008
  4. HYDROXYUREA [Concomitant]
     Active Substance: HYDROXYUREA
     Indication: Product used for unknown indication
     Dosage: 500 MG
     Route: 065
     Dates: start: 201510

REACTIONS (10)
  - Atrial fibrillation [Unknown]
  - Haemorrhage [Unknown]
  - Cardiac failure [Unknown]
  - Dilated cardiomyopathy [Unknown]
  - Fatigue [Unknown]
  - Weight decreased [Unknown]
  - Disease progression [Unknown]
  - Splenic infarction [Unknown]
  - Cardiac disorder [Unknown]
  - Splenomegaly [Unknown]

NARRATIVE: CASE EVENT DATE: 20161101
